FAERS Safety Report 25387030 (Version 2)
Quarter: 2025Q3

REPORT INFORMATION
  Report Type: Spontaneous
  Country: EU (occurrence: EU)
  Receive Date: 20250602
  Receipt Date: 20250901
  Transmission Date: 20251021
  Serious: Yes (Hospitalization, Other)
  Sender: BRISTOL-MYERS SQUIBB COMPANY
  Company Number: EU-BRISTOL-MYERS SQUIBB COMPANY-2025-077350

PATIENT
  Age: 67 Year
  Sex: Female

DRUGS (3)
  1. NIVOLUMAB [Suspect]
     Active Substance: NIVOLUMAB
     Indication: Metastatic malignant melanoma
     Dates: start: 20230821
  2. NIVOLUMAB [Suspect]
     Active Substance: NIVOLUMAB
     Dates: start: 20231112
  3. NELVUTAMIG [Suspect]
     Active Substance: NELVUTAMIG
     Indication: Metastatic malignant melanoma
     Dates: start: 20230821

REACTIONS (2)
  - Hypercalcaemia [Recovered/Resolved]
  - Sarcoid-like reaction [Unknown]

NARRATIVE: CASE EVENT DATE: 20231101
